FAERS Safety Report 6468655-8 (Version None)
Quarter: 2009Q4

REPORT INFORMATION
  Report Type: 
  Country: None (occurrence: None)
  Receive Date: 20091203
  Receipt Date: 20091124
  Transmission Date: 20100525
  Serious: Yes (Life-Threatening, Hospitalization)
  Sender: FDA-Public Use
  Company Number: DE-ROCHE-666418

PATIENT
  Sex: Female

DRUGS (5)
  1. MYCOPHENOLATE MOFETIL [Suspect]
     Dosage: FORM AND ROUTE AS PER PROTOCOL; LAST DOSE GIVEN ON 07 SEP 2009
     Route: 048
     Dates: start: 20081205, end: 20090907
  2. BELATACEPT [Suspect]
     Dosage: DOSING REGIMEN BLINDED, ROUTE PER PROTOCOL;  LAST DOSE GIVEN ON 07 SEP 2009
     Route: 042
     Dates: start: 20081205, end: 20090907
  3. BLINDED BASILIXIMAB [Suspect]
     Dosage: DOSE BLINDED; LAST DOSE GIVEN ON 07 SEP 2009
     Route: 042
     Dates: start: 20081205, end: 20090907
  4. PANTOPRAZOLE [Concomitant]
     Dates: start: 20080701
  5. URSO FALK [Concomitant]
     Dates: start: 20081221

REACTIONS (6)
  - ABDOMINAL PAIN [None]
  - CIRCULATORY COLLAPSE [None]
  - GRAFT LOSS [None]
  - OESOPHAGEAL VARICES HAEMORRHAGE [None]
  - RENAL FAILURE ACUTE [None]
  - TRANSPLANT FAILURE [None]
